FAERS Safety Report 9136836 (Version 1)
Quarter: 2013Q1

REPORT INFORMATION
  Report Type: Spontaneous
  Country: US (occurrence: US)
  Receive Date: 20130304
  Receipt Date: 20130304
  Transmission Date: 20140127
  Serious: No
  Sender: FDA-Public Use
  Company Number: US-ABBOTT-13P-163-1032184-00

PATIENT
  Sex: Male
  Weight: 109.41 kg

DRUGS (2)
  1. ANDROGEL [Suspect]
     Indication: BLOOD TESTOSTERONE DECREASED
     Dosage: 3 PUMPS PER DAY APPLIES TO UPPER ARMS AND SHOULDERS
     Dates: start: 20121030
  2. AVEENO LOTION [Concomitant]
     Indication: RASH

REACTIONS (4)
  - Hypertonia [Unknown]
  - Breast enlargement [Unknown]
  - Fat tissue increased [Unknown]
  - Rash [Unknown]
